FAERS Safety Report 7610024-9 (Version None)
Quarter: 2011Q3

REPORT INFORMATION
  Report Type: 
  Country: None (occurrence: None)
  Receive Date: 20110714
  Receipt Date: 20110613
  Transmission Date: 20111222
  Serious: No
  Sender: FDA-Public Use
  Company Number: US-BAYER-2011-051340

PATIENT
  Sex: Female

DRUGS (5)
  1. UNKNOWN [Concomitant]
     Indication: THYROID DISORDER
  2. ANTIHYPERTENSIVES [Concomitant]
     Indication: HYPERTENSION
  3. UNKNOWN [Concomitant]
     Indication: GOUT
  4. NAPROXEN (ALEVE) [Suspect]
     Indication: ARTHRITIS
     Dosage: 220 MG, PRN
     Route: 048
     Dates: start: 20100101
  5. OSCAL [Concomitant]

REACTIONS (1)
  - RESTLESS LEGS SYNDROME [None]
